FAERS Safety Report 13337540 (Version 1)
Quarter: 2017Q1

REPORT INFORMATION
  Report Type: Spontaneous
  Country: US (occurrence: US)
  Receive Date: 20170314
  Receipt Date: 20170314
  Transmission Date: 20170428
  Serious: No
  Sender: FDA-Public Use
  Company Number: None

PATIENT
  Age: 59 Year
  Sex: Male

DRUGS (15)
  1. ASCORBIC ACID. [Concomitant]
     Active Substance: ASCORBIC ACID
  2. FLUOROURACIL. [Concomitant]
     Active Substance: FLUOROURACIL
  3. AMPYRA [Suspect]
     Active Substance: DALFAMPRIDINE
     Indication: MULTIPLE SCLEROSIS
     Route: 048
     Dates: start: 201603, end: 201604
  4. RITUXAN [Concomitant]
     Active Substance: RITUXIMAB
  5. LIDOCAINE. [Concomitant]
     Active Substance: LIDOCAINE
  6. MODAFINIL. [Concomitant]
     Active Substance: MODAFINIL
  7. HYDROCORTISONE. [Concomitant]
     Active Substance: HYDROCORTISONE
  8. OMEPRAZOLE. [Concomitant]
     Active Substance: OMEPRAZOLE
  9. CYANOCOBALAMIN. [Concomitant]
     Active Substance: CYANOCOBALAMIN
  10. ACYCLOVIR. [Concomitant]
     Active Substance: ACYCLOVIR
  11. CHOLECALCIFEROL [Concomitant]
     Active Substance: CHOLECALCIFEROL
  12. DIAZEPAM. [Concomitant]
     Active Substance: DIAZEPAM
  13. MVI WITH MINERALS [Concomitant]
  14. TADALAFIL [Concomitant]
     Active Substance: TADALAFIL
  15. TIZANIDINE. [Concomitant]
     Active Substance: TIZANIDINE

REACTIONS (3)
  - Muscular weakness [None]
  - Drug ineffective [None]
  - Fatigue [None]

NARRATIVE: CASE EVENT DATE: 20160316
